FAERS Safety Report 11173977 (Version 5)
Quarter: 2016Q1

REPORT INFORMATION
  Report Type: Report from Study
  Country: US (occurrence: US)
  Receive Date: 20150609
  Receipt Date: 20160120
  Transmission Date: 20160525
  Serious: Yes (Hospitalization)
  Sender: FDA-Public Use
  Company Number: US-MERCK-1506USA001631

PATIENT
  Age: 56 Year
  Sex: Female
  Weight: 106.58 kg

DRUGS (15)
  1. ZOLINZA [Suspect]
     Active Substance: VORINOSTAT
     Dosage: 300 MG, 5 X PER WEEK (OFF 2 DAYS)
     Route: 048
     Dates: start: 20150324, end: 20150328
  2. JANUVIA [Concomitant]
     Active Substance: SITAGLIPTIN PHOSPHATE
     Dosage: UNK
  3. IRON (UNSPECIFIED) [Concomitant]
     Active Substance: IRON
     Dosage: UNK
  4. METFORMIN [Concomitant]
     Active Substance: METFORMIN HYDROCHLORIDE
     Dosage: UNK
  5. HYDROCODONE [Concomitant]
     Active Substance: HYDROCODONE
     Dosage: UNK
  6. CITALOPRAM [Concomitant]
     Active Substance: CITALOPRAM HYDROBROMIDE
     Dosage: UNK
  7. PRINIVIL [Concomitant]
     Active Substance: LISINOPRIL
     Dosage: UNK
  8. ZOLINZA [Suspect]
     Active Substance: VORINOSTAT
     Indication: MYCOSIS FUNGOIDES
     Dosage: 400 MG, QD
     Route: 048
     Dates: start: 20150310, end: 20150318
  9. ZOLINZA [Suspect]
     Active Substance: VORINOSTAT
     Dosage: 300 MG, QD
     Route: 048
     Dates: start: 20150331
  10. PRAVASTATIN [Concomitant]
     Active Substance: PRAVASTATIN\PRAVASTATIN SODIUM
     Dosage: UNK
  11. ZOLINZA [Suspect]
     Active Substance: VORINOSTAT
     Dosage: 300 MG, QD
     Route: 048
     Dates: start: 20150319, end: 20150323
  12. GLYBURIDE. [Concomitant]
     Active Substance: GLYBURIDE
     Dosage: UNK
  13. KLOR-CON [Concomitant]
     Active Substance: POTASSIUM CHLORIDE
     Dosage: UNK
  14. MAGNESIUM LACTATE [Concomitant]
     Active Substance: MAGNESIUM LACTATE
     Dosage: SLOW
  15. AMINOBENZOIC ACID (+) CHOLINE (+) FOLIC ACID (+) INOSITOL (+) VITAMIN [Concomitant]
     Dosage: UNK

REACTIONS (3)
  - Enteritis [Recovered/Resolved]
  - Gastrointestinal pain [Recovered/Resolved]
  - Weight decreased [Unknown]

NARRATIVE: CASE EVENT DATE: 20150313
